FAERS Safety Report 5297753-X (Version None)
Quarter: 2007Q2

REPORT INFORMATION
  Report Type: 
  Country: None (occurrence: None)
  Receive Date: 20070416
  Receipt Date: 20070402
  Transmission Date: 20071010
  Serious: Yes (Hospitalization, Other)
  Sender: FDA-Public Use
  Company Number: US-ELI_LILLY_AND_COMPANY-US200704000174

PATIENT
  Sex: Female

DRUGS (1)
  1. FORTEO [Suspect]
     Indication: BONE DENSITY INCREASED
     Dosage: UNK, UNK
     Dates: start: 20051001, end: 20060701

REACTIONS (6)
  - BONE NEOPLASM MALIGNANT [None]
  - BONE PAIN [None]
  - HAEMATURIA [None]
  - METASTASES TO LYMPH NODES [None]
  - RENAL CELL CARCINOMA STAGE UNSPECIFIED [None]
  - RENAL SURGERY [None]
